FAERS Safety Report 8965995 (Version 1)
Quarter: 2012Q4

REPORT INFORMATION
  Report Type: 
  Country: US (occurrence: US)
  Receive Date: 20121217
  Receipt Date: 20121217
  Transmission Date: 20130627
  Serious: No
  Sender: FDA-Public Use
  Company Number: US-ABBOTT-12P-163-0947483-00

PATIENT
  Age: 50 Year
  Sex: Female

DRUGS (1)
  1. TRILIPIX [Suspect]
     Indication: PRODUCT USED FOR UNKNOWN INDICATION

REACTIONS (3)
  - Vomiting [Unknown]
  - Rash [Unknown]
  - Fatigue [Unknown]
